FAERS Safety Report 6079963-7 (Version None)
Quarter: 2009Q1

REPORT INFORMATION
  Report Type: 
  Country: None (occurrence: None)
  Receive Date: 20090217
  Receipt Date: 20081212
  Transmission Date: 20090719
  Serious: Yes (Other)
  Sender: FDA-Public Use
  Company Number: DE-PFIZER INC-2008152987

PATIENT

DRUGS (3)
  1. NELFINAVIR MESILATE [Suspect]
  2. STAVUDINE [Suspect]
  3. LAMIVUDINE [Suspect]

REACTIONS (1)
  - GENOTYPE DRUG RESISTANCE TEST POSITIVE [None]
